FAERS Safety Report 12244931 (Version 1)
Quarter: 2016Q2

REPORT INFORMATION
  Report Type: Report from Study
  Country: FR (occurrence: FR)
  Receive Date: 20160407
  Receipt Date: 20160407
  Transmission Date: 20160815
  Serious: Yes (Other)
  Sender: FDA-Public Use
  Company Number: FR-TEVA-649441ISR

PATIENT
  Age: 43 Year
  Sex: Female
  Weight: 50 kg

DRUGS (7)
  1. ARACYTINE [Suspect]
     Active Substance: CYTARABINE
  2. ERYTHROPOIETIN [Concomitant]
     Active Substance: ERYTHROPOIETIN
     Indication: PANCYTOPENIA
     Dates: start: 201510, end: 201510
  3. PURINETHOL [Suspect]
     Active Substance: MERCAPTOPURINE
  4. METHOTREXATE [Suspect]
     Active Substance: METHOTREXATE
  5. VESANOID [Suspect]
     Active Substance: TRETINOIN
  6. ZAVEDOS [Suspect]
     Active Substance: IDARUBICIN
  7. GRANOCYTE [Concomitant]
     Active Substance: LENOGRASTIM
     Indication: PANCYTOPENIA
     Dates: start: 201510, end: 201510

REACTIONS (1)
  - Acute myeloid leukaemia [Recovering/Resolving]

NARRATIVE: CASE EVENT DATE: 20151008
